FAERS Safety Report 5533913-8 (Version None)
Quarter: 2007Q4

REPORT INFORMATION
  Report Type: 
  Country: None (occurrence: None)
  Receive Date: 20071129
  Receipt Date: 20071114
  Transmission Date: 20080405
  Serious: Yes (Other)
  Sender: FDA-Public Use
  Company Number: 2007AP001079

PATIENT
  Age: 62 Year
  Sex: Male

DRUGS (5)
  1. APO-METFORMIN (METFORMIN HYDROCHLORIDE) [Suspect]
     Indication: DIABETES MELLITUS
     Dosage: 500 MG;QD PO
     Route: 048
     Dates: start: 20060109, end: 20071001
  2. HYDROCHLOROTHIAZIDE/TRIAMTERENE (HYDROCHLOROTHIAZIDE/TRIAMTERENE) [Suspect]
     Indication: DIURETIC THERAPY
     Dosage: 1 TAB;QD; PO
     Route: 048
     Dates: start: 20010305
  3. LEVOTHYROXINE SODIUM [Concomitant]
  4. CANDESARTAN CILEXETIL (CANDESARTAN CILEXETIL) [Concomitant]
  5. ACETAMINOPHEN [Concomitant]

REACTIONS (8)
  - ANGIOEDEMA [None]
  - DIABETES MELLITUS [None]
  - ERYTHEMA [None]
  - HYPERSENSITIVITY [None]
  - PARAESTHESIA [None]
  - REACTION TO DRUG EXCIPIENTS [None]
  - SWELLING FACE [None]
  - URTICARIA [None]
